FAERS Safety Report 26104705 (Version 1)
Quarter: 2025Q4

REPORT INFORMATION
  Report Type: Spontaneous
  Country: IN (occurrence: IN)
  Receive Date: 20251130
  Receipt Date: 20251130
  Transmission Date: 20260118
  Serious: Yes (Life-Threatening, Other)
  Sender: ALKEM
  Company Number: None

PATIENT
  Age: 44 Year
  Sex: Male

DRUGS (2)
  1. MYCOPHENOLATE MOFETIL [Suspect]
     Active Substance: MYCOPHENOLATE MOFETIL
     Indication: Immunosuppressant drug therapy
     Dosage: UNK
     Route: 065
  2. MYCOPHENOLATE MOFETIL [Suspect]
     Active Substance: MYCOPHENOLATE MOFETIL
     Dosage: UNK (RECHALLENGE DOSE)
     Route: 065

REACTIONS (2)
  - Anaemia [Recovered/Resolved]
  - Parvovirus B19 infection [Unknown]
